FAERS Safety Report 7657420-1 (Version None)
Quarter: 2011Q3

REPORT INFORMATION
  Report Type: 
  Country: None (occurrence: None)
  Receive Date: 20110804
  Receipt Date: 20110725
  Transmission Date: 20111222
  Serious: Yes (Other)
  Sender: FDA-Public Use
  Company Number: US-MYLANLABS-2011S1005716

PATIENT
  Age: 26 Year
  Sex: Male

DRUGS (7)
  1. LORAZEPAM [Suspect]
     Indication: CONVULSION
     Route: 048
     Dates: end: 20110301
  2. CLONIDINE [Concomitant]
     Indication: BLOOD PRESSURE INCREASED
  3. TRILEPTAL [Concomitant]
     Indication: CONVULSION
  4. LEVETIRACETAM [Concomitant]
     Indication: CONVULSION
  5. LORAZEPAM [Suspect]
     Dosage: TABLET SPLIT IN HALF QAM AND GIVEN 2MG PRN FOR SEIZURE AND BEHAVIOR CONTROL.
     Route: 048
  6. LORAZEPAM [Suspect]
     Dosage: TABLET SPLIT IN HALF QAM AND GIVEN 2MG PRN FOR SEIZURE AND BEHAVIOR CONTROL.
     Route: 048
     Dates: start: 20110301
  7. PROPRANOLOL [Concomitant]
     Indication: BLOOD PRESSURE INCREASED

REACTIONS (6)
  - STUPOR [None]
  - CONVULSION [None]
  - DRUG SCREEN NEGATIVE [None]
  - IRRITABILITY [None]
  - AGGRESSION [None]
  - DRUG INEFFECTIVE FOR UNAPPROVED INDICATION [None]
